FAERS Safety Report 7951351-5 (Version None)
Quarter: 2011Q4

REPORT INFORMATION
  Report Type: 
  Country: None (occurrence: None)
  Receive Date: 20111201
  Receipt Date: 20111129
  Transmission Date: 20120403
  Serious: Yes (Death, Hospitalization)
  Sender: FDA-Public Use
  Company Number: SE-GENZYME-CAMP-1001992

PATIENT
  Age: 59 Year
  Sex: Male

DRUGS (26)
  1. CYCLOPHOSPHAMIDE [Suspect]
     Dosage: 1400 MG, ONCE PER CYCLE (CYCLE 6)
     Route: 042
     Dates: start: 20111014, end: 20111014
  2. DOXORUBICIN HCL [Suspect]
     Dosage: 95 MG, ONCE PER CYCLE (CYCLE 6)
     Route: 042
     Dates: start: 20111014, end: 20111014
  3. PREDNISONE [Suspect]
     Dosage: 100 MG, QD ON DAYS 1-5 OF EACH CYCLE (CYCLE 4)
     Route: 048
  4. PREDNISONE [Suspect]
     Dosage: 100 MG, QD ON DAYS 1-5 OF EACH CYCLE (CYCLE 5)
     Route: 048
  5. CYCLOPHOSPHAMIDE [Suspect]
     Dosage: 1400 MG, ONCE PER CYCLE (CYCLE 3)
     Route: 042
  6. FILGRASTIM [Suspect]
     Dosage: 0.3 MG, DAYS 4-12 EACH CYCLE (CYCLE 5)
     Route: 058
  7. FILGRASTIM [Suspect]
     Dosage: 0.3 MG, DAYS 4-12 EACH CYCLE (CYCLE 6)
     Route: 058
  8. DOXORUBICIN HCL [Suspect]
     Dosage: 95 MG, ONCE PER CYCLE (CYCLE 2)
     Route: 042
  9. DOXORUBICIN HCL [Suspect]
     Dosage: 95 MG, ONCE PER CYCLE (CYCLE 4)
     Route: 042
  10. PREDNISONE [Suspect]
     Indication: T-CELL LYMPHOMA
     Dosage: 100 MG, QD ON DAYS 1-5 OF EACH CYCLE (CYCLE 1)
     Route: 048
     Dates: start: 20110701
  11. PREDNISONE [Suspect]
     Dosage: 100 MG, QD ON DAYS 1-5 OF EACH CYCLE (CYCLE 2)
     Route: 048
  12. CAMPATH [Suspect]
     Indication: T-CELL LYMPHOMA
     Dosage: 30 MG ON DAY 1 OF EACH CYCLE
     Route: 058
     Dates: start: 20110701, end: 20110819
  13. DOXORUBICIN HCL [Suspect]
     Dosage: 95 MG, ONCE PER CYCLE (CYCLE 3)
     Route: 042
  14. VINCRISTINE [Suspect]
     Indication: T-CELL LYMPHOMA
     Dosage: 2 MG ON DAY 1 OF EACH CYCLE
     Route: 042
     Dates: start: 20110701, end: 20110902
  15. CYCLOPHOSPHAMIDE [Suspect]
     Dosage: 1400 MG, ONCE PER CYCLE (CYCLE 2)
     Route: 042
  16. PREDNISONE [Suspect]
     Dosage: 100 MG, QD ON DAYS 1-5 OF EACH CYCLE (CYCLE 6)
     Route: 048
     Dates: end: 20111018
  17. FILGRASTIM [Suspect]
     Dosage: 0.3 MG, DAYS 4-12 EACH CYCLE (CYCLE 3)
     Route: 058
  18. CYCLOPHOSPHAMIDE [Suspect]
     Indication: T-CELL LYMPHOMA
     Dosage: 1400 MG, ONCE PER CYCLE (CYCLE 1)
     Route: 042
     Dates: start: 20110701, end: 20110701
  19. CYCLOPHOSPHAMIDE [Suspect]
     Dosage: 1400 MG, ONCE PER CYCLE (CYCLE 5)
     Route: 042
  20. DOXORUBICIN HCL [Suspect]
     Dosage: 95 MG, ONCE PER CYCLE (CYCLE 5)
     Route: 042
  21. FILGRASTIM [Suspect]
     Dosage: 0.3 MG, DAYS 4-12 EACH CYCLE (CYCLE 4)
     Route: 058
  22. CYCLOPHOSPHAMIDE [Suspect]
     Dosage: 1400 MG, ONCE PER CYCLE (CYCLE 4)
     Route: 042
  23. DOXORUBICIN HCL [Suspect]
     Indication: T-CELL LYMPHOMA
     Dosage: 95 MG, ONCE PER CYCLE (CYCLE 1)
     Route: 042
     Dates: start: 20110701, end: 20110701
  24. PREDNISONE [Suspect]
     Dosage: 100 MG, QD ON DAYS 1-5 OF EACH CYCLE (CYCLE 3)
     Route: 048
  25. FILGRASTIM [Suspect]
     Indication: T-CELL LYMPHOMA
     Dosage: 0.3 MG, DAYS 4-12 EACH CYCLE (CYCLE 1)
     Route: 058
     Dates: start: 20110705
  26. FILGRASTIM [Suspect]
     Dosage: 0.3 MG, DAYS 4-12 EACH CYCLE (CYCLE 2)
     Route: 058

REACTIONS (2)
  - HAEMORRHAGE INTRACRANIAL [None]
  - FEBRILE NEUTROPENIA [None]
